FAERS Safety Report 5237950-2 (Version None)
Quarter: 2007Q1

REPORT INFORMATION
  Report Type: 
  Country: None (occurrence: None)
  Receive Date: 20070209
  Receipt Date: 20070130
  Transmission Date: 20070707
  Serious: Yes (Death, Hospitalization)
  Sender: FDA-Public Use
  Company Number: 2006SP008924

PATIENT
  Age: 41 Year
  Sex: Male
  Weight: 50 kg

DRUGS (6)
  1. POSACONAZOLE [Suspect]
     Indication: FUNGAL SEPSIS
     Dosage: 200 MG; QID; PO
     Route: 048
     Dates: start: 20061220, end: 20061223
  2. IMIPENEM [Concomitant]
  3. ACYCLOVIR [Concomitant]
  4. OMEPRAZOLE [Concomitant]
  5. DAFLON [Concomitant]
  6. IMMUNE GLOBULIN INTRAVENOUS (HUMAN) [Concomitant]

REACTIONS (6)
  - HAEMATOCRIT DECREASED [None]
  - HAEMOGLOBIN DECREASED [None]
  - MONOCYTE PERCENTAGE INCREASED [None]
  - NEUTROPHIL PERCENTAGE DECREASED [None]
  - RED BLOOD CELL COUNT DECREASED [None]
  - UPPER GASTROINTESTINAL HAEMORRHAGE [None]
